FAERS Safety Report 9764502 (Version 2)
Quarter: 2014Q1

REPORT INFORMATION
  Report Type: Spontaneous
  Country: IT (occurrence: IT)
  Receive Date: 20131217
  Receipt Date: 20140318
  Transmission Date: 20141002
  Serious: Yes (Hospitalization, Other)
  Sender: FDA-Public Use
  Company Number: IT-BRISTOL-MYERS SQUIBB COMPANY-19891936

PATIENT
  Age: 35 Year
  Sex: Female

DRUGS (5)
  1. REYATAZ CAPS 300 MG [Suspect]
     Indication: ANTIRETROVIRAL THERAPY
     Route: 048
  2. ISENTRESS [Interacting]
     Indication: ANTIRETROVIRAL THERAPY
     Dosage: PRODUCT FORMULATION:ISENTERSS 400 MG TABS
     Route: 048
  3. NORVIR [Interacting]
     Indication: ANTIRETROVIRAL THERAPY
     Dosage: PRODUCT FORMULATION:NORVIR 100 MG TABS
     Route: 048
  4. VALGANCICLOVIR [Concomitant]
     Indication: CYTOMEGALOVIRUS CHORIORETINITIS
     Dosage: PRODUCT FORMULATION:VALGANCICLOVIR HYDROCHLORIDE
  5. KEPPRA [Concomitant]
     Indication: EPILEPSY
     Dosage: PRODUCT FORMULATION:KEPPRA 500 MG TABS
     Route: 048

REACTIONS (2)
  - Rhabdomyolysis [Recovering/Resolving]
  - Drug interaction [Unknown]
